FAERS Safety Report 10237786 (Version 2)
Quarter: 2014Q2

REPORT INFORMATION
  Report Type: Report from Study
  Country: DE (occurrence: DE)
  Receive Date: 20140616
  Receipt Date: 20140616
  Transmission Date: 20141212
  Serious: Yes (Hospitalization)
  Sender: FDA-Public Use
  Company Number: DE-ROCHE-1082766

PATIENT
  Age: 80 Year
  Sex: Male
  Weight: 68 kg

DRUGS (7)
  1. OBINUTUZUMAB [Suspect]
     Indication: B-CELL LYMPHOMA
     Dosage: DOSE CONCENTRATION: 4 MG/ML, LAST DOSE PRIOR TO SAE: 26/JUN/2012
     Route: 042
     Dates: start: 20120626
  2. BENDAMUSTINE [Suspect]
     Indication: B-CELL LYMPHOMA
     Route: 042
     Dates: start: 20120710
  3. PARACETAMOL [Concomitant]
     Indication: PREMEDICATION
     Route: 065
     Dates: start: 20120627, end: 20120627
  4. PARACETAMOL [Concomitant]
     Route: 065
     Dates: start: 20120626, end: 20130103
  5. FENISTIL (GERMANY) [Concomitant]
     Indication: PREMEDICATION
     Route: 065
     Dates: start: 20120626, end: 20130103
  6. RANITIDIN [Concomitant]
     Indication: PREMEDICATION
     Route: 065
     Dates: start: 20120626, end: 20130103
  7. PREDNISOLUT [Concomitant]
     Indication: PREMEDICATION
     Route: 065
     Dates: start: 20120626, end: 20130103

REACTIONS (1)
  - Cytokine release syndrome [Recovered/Resolved]
